FAERS Safety Report 19813253 (Version 1)
Quarter: 2021Q3

REPORT INFORMATION
  Report Type: Spontaneous
  Country: US (occurrence: US)
  Receive Date: 20210909
  Receipt Date: 20210909
  Transmission Date: 20211014
  Serious: Yes (Hospitalization)
  Sender: FDA-Public Use
  Company Number: None

PATIENT
  Age: 73 Year
  Sex: Male
  Weight: 87.7 kg

DRUGS (1)
  1. RIVAROXABAN [Suspect]
     Active Substance: RIVAROXABAN
     Indication: ATRIAL FIBRILLATION
     Route: 048
     Dates: start: 20210628, end: 20210706

REACTIONS (7)
  - Pulmonary embolism [None]
  - Gastric ulcer [None]
  - Gastrointestinal haemorrhage [None]
  - Haematocrit decreased [None]
  - Gastritis erosive [None]
  - Pulmonary infarction [None]
  - Haemoglobin decreased [None]

NARRATIVE: CASE EVENT DATE: 20210706
